FAERS Safety Report 9500985 (Version 1)
Quarter: 2013Q3

REPORT INFORMATION
  Report Type: Spontaneous
  Country: US (occurrence: US)
  Receive Date: 20130905
  Receipt Date: 20130905
  Transmission Date: 20140515
  Serious: No
  Sender: FDA-Public Use
  Company Number: US-TEVA-428330USA

PATIENT
  Sex: 0

DRUGS (3)
  1. AZILECT [Suspect]
     Indication: TREMOR
     Route: 048
  2. CARBIDOPA W/LEVODOPA [Concomitant]
  3. NEUPRO [Concomitant]
     Route: 048

REACTIONS (3)
  - Dysgeusia [Not Recovered/Not Resolved]
  - Tremor [Not Recovered/Not Resolved]
  - Drug ineffective [Not Recovered/Not Resolved]
